FAERS Safety Report 9105562 (Version 2)
Quarter: 2013Q2

REPORT INFORMATION
  Report Type: Report from Study
  Country: US (occurrence: US)
  Receive Date: 20130220
  Receipt Date: 20130415
  Transmission Date: 20140414
  Serious: Yes (Other)
  Sender: FDA-Public Use
  Company Number: US-BAYER-2013-018313

PATIENT
  Age: 59 Year
  Sex: Male

DRUGS (1)
  1. STIVARGA [Suspect]
     Indication: RECTAL CANCER
     Dosage: 160 MG, QD ( 4X40MG)
     Route: 048
     Dates: start: 20130206, end: 20130321

REACTIONS (6)
  - Pain in extremity [None]
  - Mobility decreased [None]
  - Dry mouth [None]
  - Salivary hypersecretion [None]
  - Dysphonia [None]
  - Hypersomnia [None]
